FAERS Safety Report 6738829-7 (Version None)
Quarter: 2010Q2

REPORT INFORMATION
  Report Type: 
  Country: None (occurrence: None)
  Receive Date: 20100520
  Receipt Date: 20100505
  Transmission Date: 20101027
  Serious: Yes (Hospitalization)
  Sender: FDA-Public Use
  Company Number: 2010001818

PATIENT
  Age: 75 Year
  Sex: Female

DRUGS (10)
  1. ERLOTINIB (ERLOTINIB) (TABLET) (ERLOTINIB) [Suspect]
     Indication: NON-SMALL CELL LUNG CANCER
     Dosage: 150 MG, QD, ORAL
     Route: 048
     Dates: start: 20081020, end: 20100421
  2. TEGRETOL [Concomitant]
  3. ATENOLOL [Concomitant]
  4. LIPITOR [Concomitant]
  5. LISINOPRIL [Concomitant]
  6. BENZONATATE [Concomitant]
  7. GUAIFENESIN [Concomitant]
  8. DITROPAN [Concomitant]
  9. TEGRETOL [Concomitant]
  10. TYLENOL (PARACETAMOL) [Concomitant]

REACTIONS (4)
  - CHOLECYSTITIS INFECTIVE [None]
  - ESCHERICHIA INFECTION [None]
  - GALLBLADDER ABSCESS [None]
  - PNEUMONIA [None]
